FAERS Safety Report 6583376-9 (Version None)
Quarter: 2010Q1

REPORT INFORMATION
  Report Type: 
  Country: None (occurrence: None)
  Receive Date: 20100216
  Receipt Date: 20100202
  Transmission Date: 20100710
  Serious: Yes (Hospitalization)
  Sender: FDA-Public Use
  Company Number: JP-SANOFI-AVENTIS-2010SA007580

PATIENT
  Age: 55 Year
  Sex: Male

DRUGS (6)
  1. OXALIPLATIN [Suspect]
     Indication: LARGE INTESTINE CARCINOMA
     Route: 041
     Dates: start: 20091216, end: 20091216
  2. OXALIPLATIN [Suspect]
     Route: 041
     Dates: start: 20100129, end: 20100129
  3. TS-1 [Suspect]
     Indication: LARGE INTESTINE CARCINOMA
     Route: 048
     Dates: start: 20091216, end: 20091230
  4. TS-1 [Suspect]
     Route: 048
     Dates: start: 20100129, end: 20100130
  5. AVASTIN [Concomitant]
     Indication: LARGE INTESTINE CARCINOMA
     Route: 041
     Dates: start: 20091216, end: 20091216
  6. AVASTIN [Concomitant]
     Route: 041
     Dates: start: 20100129, end: 20100129

REACTIONS (1)
  - GASTROINTESTINAL PERFORATION [None]
